FAERS Safety Report 9708734 (Version 2)
Quarter: 2013Q4

REPORT INFORMATION
  Report Type: Spontaneous
  Country: US (occurrence: US)
  Receive Date: 20131125
  Receipt Date: 20131203
  Transmission Date: 20140711
  Serious: Yes (Hospitalization, Congenital Anomaly)
  Sender: FDA-Public Use
  Company Number: US-GLAXOSMITHKLINE-A1051109A

PATIENT
  Age: 0 Day
  Sex: Female

DRUGS (3)
  1. PAXIL [Suspect]
     Indication: DEPRESSION
     Route: 064
     Dates: start: 200306, end: 200308
  2. CELEXA [Concomitant]
  3. LORAZEPAM [Concomitant]

REACTIONS (4)
  - Fallot^s tetralogy [Unknown]
  - Lung disorder [Unknown]
  - Cardiac disorder [Unknown]
  - Foetal exposure during pregnancy [Unknown]
